FAERS Safety Report 21260707 (Version 1)
Quarter: 2022Q3

REPORT INFORMATION
  Report Type: Spontaneous
  Country: US (occurrence: US)
  Receive Date: 20220826
  Receipt Date: 20220826
  Transmission Date: 20221027
  Serious: No
  Sender: FDA-Public Use
  Company Number: US-MYLANLABS-2022M1080766

PATIENT
  Age: 68 Year
  Sex: Female
  Weight: 54.43 kg

DRUGS (2)
  1. FENTANYL TRANSDERMAL SYSTEM [Suspect]
     Active Substance: FENTANYL
     Indication: Pain
     Dosage: 50 MICROGRAM, QH, Q3D
     Route: 062
  2. FENTANYL TRANSDERMAL SYSTEM [Suspect]
     Active Substance: FENTANYL
     Indication: Pain
     Dosage: 25 MICROGRAM, Q3D
     Route: 062

REACTIONS (5)
  - Sleep disorder [Unknown]
  - Tension [Unknown]
  - Drug ineffective [Unknown]
  - Stress [Unknown]
  - Malaise [Unknown]

NARRATIVE: CASE EVENT DATE: 20220628
